FAERS Safety Report 17579820 (Version 1)
Quarter: 2020Q1

REPORT INFORMATION
  Report Type: Report from Study
  Country: DE (occurrence: DE)
  Receive Date: 20200325
  Receipt Date: 20200325
  Transmission Date: 20200409
  Serious: Yes (Death)
  Sender: FDA-Public Use
  Company Number: DE-JNJFOC-20200325323

PATIENT
  Age: 66 Year
  Sex: Female
  Weight: 64 kg

DRUGS (1)
  1. STELARA [Suspect]
     Active Substance: USTEKINUMAB
     Indication: PSORIASIS
     Route: 058
     Dates: start: 201812, end: 201906

REACTIONS (1)
  - Angiosarcoma [Fatal]

NARRATIVE: CASE EVENT DATE: 20200108
